FAERS Safety Report 9595402 (Version 1)
Quarter: 2013Q3

REPORT INFORMATION
  Report Type: Spontaneous
  Country: US (occurrence: None)
  Receive Date: 20130927
  Receipt Date: 20130927
  Transmission Date: 20140515
  Serious: Yes (Hospitalization)
  Sender: FDA-Public Use
  Company Number: CABO-13002928

PATIENT
  Age: 61 Year
  Sex: Male
  Weight: 84.5 kg

DRUGS (2)
  1. COMETRIQ [Suspect]
     Indication: COLON CANCER
     Route: 048
     Dates: start: 20130425, end: 20130506
  2. COMETRIQ [Suspect]
     Indication: THYROID CANCER
     Route: 048
     Dates: start: 20130425, end: 20130506

REACTIONS (1)
  - Constipation [None]
